FAERS Safety Report 21761239 (Version 1)
Quarter: 2022Q4

REPORT INFORMATION
  Report Type: Report from Study
  Country: US (occurrence: US)
  Receive Date: 20221221
  Receipt Date: 20221221
  Transmission Date: 20230113
  Serious: Yes (Hospitalization)
  Sender: FDA-Public Use
  Company Number: US-AMRYT PHARMACEUTICALS DAC-AEGR006174

PATIENT

DRUGS (1)
  1. MYALEPT [Suspect]
     Active Substance: METRELEPTIN
     Indication: Congenital generalised lipodystrophy
     Route: 058

REACTIONS (6)
  - Diabetic complication [Unknown]
  - Diabetic ulcer [Unknown]
  - Infection [Unknown]
  - Diarrhoea [Unknown]
  - Treatment noncompliance [Unknown]
  - Therapy interrupted [Unknown]
